FAERS Safety Report 8584823 (Version 2)
Quarter: 2014Q2

REPORT INFORMATION
  Report Type: Report from Study
  Country: GB (occurrence: GB)
  Receive Date: 20120529
  Receipt Date: 20140403
  Transmission Date: 20141212
  Serious: Yes (Death)
  Sender: FDA-Public Use
  Company Number: GB-MYLANLABS-2012S1010011

PATIENT
  Age: 67 Year
  Sex: Male
  Weight: 85 kg

DRUGS (8)
  1. EPIRUBICIN [Suspect]
     Indication: GASTRIC CANCER
     Route: 042
     Dates: start: 20110922
  2. EPIRUBICIN [Suspect]
     Indication: GASTRIC CANCER
     Route: 042
     Dates: start: 20111117
  3. BEVACIZUMAB [Suspect]
     Indication: GASTRIC CANCER
     Route: 042
     Dates: start: 20110922
  4. BEVACIZUMAB [Suspect]
     Indication: GASTRIC CANCER
     Route: 042
     Dates: start: 20111117
  5. CAPECITABINE [Suspect]
     Indication: GASTRIC CANCER
     Route: 048
     Dates: start: 20110922
  6. CAPECITABINE [Suspect]
     Indication: GASTRIC CANCER
     Route: 048
     Dates: start: 20111208
  7. CISPLATIN [Suspect]
     Indication: GASTRIC CANCER
     Route: 042
     Dates: start: 20110922
  8. CISPLATIN [Suspect]
     Indication: GASTRIC CANCER
     Route: 042
     Dates: start: 20111117

REACTIONS (2)
  - Gastrointestinal anastomotic leak [Fatal]
  - Post procedural haemorrhage [Fatal]
